FAERS Safety Report 7399565-X (Version None)
Quarter: 2011Q2

REPORT INFORMATION
  Report Type: 
  Country: None (occurrence: None)
  Receive Date: 20110407
  Receipt Date: 20110314
  Transmission Date: 20111010
  Serious: Yes (Hospitalization, Other)
  Sender: FDA-Public Use
  Company Number: AE-BAYER-201041077NA

PATIENT
  Sex: Female
  Weight: 86 kg

DRUGS (14)
  1. YASMIN [Suspect]
     Indication: PRODUCT USED FOR UNKNOWN INDICATION
     Dosage: UNK
     Dates: start: 20070801, end: 20090901
  2. NORCO [Concomitant]
     Dosage: AS NEEDED
  3. NAPROXEN [Concomitant]
  4. DROSPIRENONE AND ETHINYL ESTRADIOL [Suspect]
     Dosage: UNK
     Dates: start: 20070801, end: 20090901
  5. MAXALT [Concomitant]
     Indication: MENSTRUAL CYCLE MANAGEMENT
  6. SUDAFED 12 HOUR [Concomitant]
     Indication: SINUSITIS
     Route: 048
  7. SERTRALINE HYDROCHLORIDE [Concomitant]
     Dosage: 100 MG, UNK
     Dates: start: 20090901
  8. FERROUS SULFATE TAB [Concomitant]
     Dosage: 650 MG (DAILY DOSE), BID, ORAL
     Route: 048
  9. CLONAZEPAM [Concomitant]
     Dosage: 0.5 MG, UNK
     Dates: start: 20090901
  10. DROSPIRENONE AND ETHINYL ESTRADIOL [Suspect]
     Indication: PRODUCT USED FOR UNKNOWN INDICATION
     Dosage: UNK
     Dates: start: 20070801, end: 20090901
  11. YAZ [Suspect]
     Indication: MENSTRUAL DISORDER
     Route: 048
     Dates: start: 20070101, end: 20090801
  12. CLONAZEPAM [Concomitant]
     Dosage: 0.5 MG, UNK
     Dates: start: 20091005
  13. CLONAZEPAM [Concomitant]
     Dosage: 0.5 MG, UNK
     Dates: start: 20090110
  14. CLONAZEPAM [Concomitant]
     Dosage: 0.5 MG, UNK
     Dates: start: 20081124

REACTIONS (12)
  - PAIN IN EXTREMITY [None]
  - CHOLELITHIASIS [None]
  - BILIARY COLIC [None]
  - ABDOMINAL PAIN UPPER [None]
  - CHEST PAIN [None]
  - GALLBLADDER DISORDER [None]
  - ABDOMINAL PAIN LOWER [None]
  - PAIN [None]
  - ANXIETY [None]
  - INTRA-ABDOMINAL HAEMORRHAGE [None]
  - PANIC ATTACK [None]
  - CHOLECYSTITIS CHRONIC [None]
